FAERS Safety Report 12482183 (Version 1)
Quarter: 2016Q2

REPORT INFORMATION
  Report Type: Report from Study
  Country: NL (occurrence: NL)
  Receive Date: 20160620
  Receipt Date: 20160620
  Transmission Date: 20160815
  Serious: Yes (Hospitalization)
  Sender: FDA-Public Use
  Company Number: PHHY2016NL081886

PATIENT
  Sex: Male

DRUGS (1)
  1. SANDOSTATIN LAR DEPOT [Suspect]
     Active Substance: OCTREOTIDE ACETATE
     Indication: NEUROENDOCRINE TUMOUR
     Dosage: 30 MG/2ML, QMO
     Route: 030

REACTIONS (5)
  - Weight decreased [Unknown]
  - Constipation [Unknown]
  - Vomiting [Unknown]
  - Gastrointestinal disorder [Not Recovered/Not Resolved]
  - Diarrhoea [Unknown]
